FAERS Safety Report 13647330 (Version 2)
Quarter: 2017Q3

REPORT INFORMATION
  Report Type: Report from Study
  Country: US (occurrence: US)
  Receive Date: 20170613
  Receipt Date: 20170712
  Transmission Date: 20171127
  Serious: Yes (Hospitalization)
  Sender: FDA-Public Use
  Company Number: US-SA-2017SA103614

PATIENT
  Age: 36 Year
  Sex: Male
  Weight: 54.8 kg

DRUGS (3)
  1. ISONIAZID. [Suspect]
     Active Substance: ISONIAZID
     Indication: PULMONARY TUBERCULOSIS
     Route: 065
     Dates: start: 20170119, end: 20170520
  2. RIFAPENTINE [Suspect]
     Active Substance: RIFAPENTINE
     Indication: PULMONARY TUBERCULOSIS
     Route: 048
     Dates: start: 20170119, end: 20170520
  3. RIFAMPICIN [Suspect]
     Active Substance: RIFAMPIN
     Indication: PULMONARY TUBERCULOSIS
     Route: 065
     Dates: start: 20170119, end: 20170520

REACTIONS (1)
  - Cerebral infarction [Recovered/Resolved with Sequelae]

NARRATIVE: CASE EVENT DATE: 20170503
